FAERS Safety Report 6389753-3 (Version None)
Quarter: 2009Q4

REPORT INFORMATION
  Report Type: 
  Country: None (occurrence: None)
  Receive Date: 20091001
  Receipt Date: 20090922
  Transmission Date: 20100525
  Serious: Yes (Other)
  Sender: FDA-Public Use
  Company Number: 2009AP003478

PATIENT
  Age: 46 Year
  Sex: Female

DRUGS (2)
  1. TOPIRAMATE TABLETS (200 MG) [Suspect]
     Indication: MIGRAINE PROPHYLAXIS
     Dosage: 200 MG; QD; PO
     Route: 048
     Dates: start: 20090704, end: 20090801
  2. TOPIRAMATE [Concomitant]

REACTIONS (3)
  - ANORGASMIA [None]
  - DRUG INEFFECTIVE [None]
  - MIGRAINE [None]
